FAERS Safety Report 9235552 (Version 1)
Quarter: 2013Q1

REPORT INFORMATION
  Report Type: Spontaneous
  Country: US (occurrence: None)
  Receive Date: 20121031
  Receipt Date: 20121031
  Transmission Date: 20140127
  Serious: No
  Sender: FDA-Public Use
  Company Number: PHEH2012US016800

PATIENT
  Age: 52 Year
  Sex: Female
  Weight: 77.1 kg

DRUGS (12)
  1. GILENYA (FTY) CAPSULE, 0.5MG [Suspect]
     Route: 048
  2. KLONOPIN (CLONAZEPAM) (TABLETS) [Concomitant]
  3. SINGULAIR [Concomitant]
  4. NORVASC (AMLODIPINE BESILATE) [Concomitant]
  5. SYNTHROID (LEVOTHYROXINE SODIUM) [Concomitant]
  6. MACROBID (NITROFURANTOIN) [Concomitant]
  7. BACLOFEN (BACLOFEN) [Concomitant]
  8. PRILOSEC [Concomitant]
  9. LIDODERM (LIDOCAINE) [Concomitant]
  10. PROVIGIL (MODAFINIL) [Concomitant]
  11. VITAMIN D (ERGOCALCIFEROL) [Concomitant]
  12. STOOL SOFTENER (DOCUSATE SODIUM) [Concomitant]

REACTIONS (2)
  - Blood creatinine increased [None]
  - Hepatic enzyme increased [None]
